FAERS Safety Report 6426575-9 (Version None)
Quarter: 2009Q4

REPORT INFORMATION
  Report Type: 
  Country: None (occurrence: None)
  Receive Date: 20091104
  Receipt Date: 20091010
  Transmission Date: 20100525
  Serious: Yes (Other)
  Sender: FDA-Public Use
  Company Number: PL-PFIZER INC-2009288174

PATIENT
  Age: 39 Year
  Sex: Male

DRUGS (7)
  1. NELFINAVIR MESILATE [Suspect]
     Indication: HIV INFECTION
     Dosage: UNK
     Route: 065
     Dates: end: 20070601
  2. PEGINTERFERON ALFA-2A [Suspect]
     Indication: HIV INFECTION
     Dosage: 180 UG, UNK
     Route: 065
     Dates: start: 20071004, end: 20080901
  3. RIBAVIRIN [Suspect]
     Indication: HIV INFECTION
     Dosage: 1200 MG, UNK
     Route: 065
     Dates: start: 20071004, end: 20080901
  4. SAQUINAVIR [Suspect]
     Indication: HIV INFECTION
     Dosage: UNK
     Route: 065
     Dates: start: 20071003
  5. TENOFOVIR [Concomitant]
     Dosage: UNK
     Dates: start: 20071003
  6. LAMIVUDINE [Concomitant]
     Dosage: UNK
     Dates: start: 20071003
  7. RITONAVIR [Concomitant]
     Dosage: UNK
     Dates: start: 20071003

REACTIONS (6)
  - HAEMOGLOBIN DECREASED [None]
  - LYMPHADENOPATHY [None]
  - PNEUMOCYSTIS JIROVECI PNEUMONIA [None]
  - POST THROMBOTIC SYNDROME [None]
  - STAPHYLOCOCCAL INFECTION [None]
  - TUBERCULIN TEST POSITIVE [None]
